FAERS Safety Report 5475619-X (Version None)
Quarter: 2007Q4

REPORT INFORMATION
  Report Type: 
  Country: None (occurrence: None)
  Receive Date: 20071003
  Receipt Date: 20070614
  Transmission Date: 20080405
  Serious: No
  Sender: FDA-Public Use
  Company Number: US-KINGPHARMUSA00001-K200700744

PATIENT

DRUGS (5)
  1. SONATA [Suspect]
     Dosage: 10 MG, QHS
     Route: 048
     Dates: start: 20070601, end: 20070601
  2. ATENOLOL [Concomitant]
     Indication: HYPERTENSION
  3. INSULIN [Concomitant]
     Indication: DIABETES MELLITUS
  4. BENICAR [Concomitant]
  5. NORPACE [Concomitant]

REACTIONS (2)
  - DRUG INEFFECTIVE [None]
  - SOMNOLENCE [None]
